FAERS Safety Report 10673328 (Version 1)
Quarter: 2014Q4

REPORT INFORMATION
  Report Type: Report from Study
  Country: US (occurrence: US)
  Receive Date: 20141224
  Receipt Date: 20141224
  Transmission Date: 20150529
  Serious: Yes (Other)
  Sender: FDA-Public Use
  Company Number: US-BIOGENIDEC-2014BI135669

PATIENT
  Age: 48 Year
  Sex: Female
  Weight: 54 kg

DRUGS (15)
  1. AVONEX [Suspect]
     Active Substance: INTERFERON BETA-1A
     Indication: MULTIPLE SCLEROSIS
     Route: 030
  2. TAMOXIFEN (NOLVADEX) [Concomitant]
     Indication: BREAST CANCER
     Route: 048
  3. COLACE [Concomitant]
     Active Substance: DOCUSATE SODIUM
     Route: 048
  4. IBUPROFEN (MOTRIN) [Concomitant]
     Indication: CLUSTER HEADACHE
     Route: 048
  5. NAPROXEN SODIUM. [Concomitant]
     Active Substance: NAPROXEN SODIUM
     Route: 048
  6. ONDANSETRON [Concomitant]
     Active Substance: ONDANSETRON
     Route: 048
  7. MINOCYCLINE HCL [Concomitant]
     Active Substance: MINOCYCLINE HYDROCHLORIDE
     Route: 048
  8. VITAMIN D3 (CHOLECALCIFEROL) [Concomitant]
     Route: 048
  9. CETIRIZINE HCL [Concomitant]
     Active Substance: CETIRIZINE HYDROCHLORIDE
     Route: 048
  10. AVONEX [Suspect]
     Active Substance: INTERFERON BETA-1A
     Indication: MULTIPLE SCLEROSIS
     Route: 030
     Dates: start: 20030101
  11. IMITREX [Concomitant]
     Active Substance: SUMATRIPTAN\SUMATRIPTAN SUCCINATE
     Indication: CLUSTER HEADACHE
  12. AVONEX [Suspect]
     Active Substance: INTERFERON BETA-1A
     Indication: MULTIPLE SCLEROSIS
     Route: 030
     Dates: start: 20030110
  13. AVONEX [Suspect]
     Active Substance: INTERFERON BETA-1A
     Indication: MULTIPLE SCLEROSIS
     Route: 030
     Dates: start: 20141124
  14. CYCLOBENZAPRINE (FLEXERIL) [Concomitant]
     Route: 048
  15. CYANOCOBALAMIN (VITAMIN B 12) [Concomitant]
     Dosage: DOSE UNIT:1000
     Route: 048

REACTIONS (3)
  - Breast cancer [Unknown]
  - Hypoaesthesia [Unknown]
  - Axillary pain [Unknown]

NARRATIVE: CASE EVENT DATE: 2014
